FAERS Safety Report 23453095 (Version 1)
Quarter: 2024Q1

REPORT INFORMATION
  Report Type: Spontaneous
  Country: TW (occurrence: TW)
  Receive Date: 20240129
  Receipt Date: 20240129
  Transmission Date: 20240410
  Serious: Yes (Life-Threatening, Hospitalization, Other)
  Sender: FDA-Public Use
  Company Number: TW-SUN PHARMACEUTICAL INDUSTRIES LTD-2024R1-428663

PATIENT
  Age: 22 Year
  Sex: Male

DRUGS (2)
  1. DEXAMETHASONE [Suspect]
     Active Substance: DEXAMETHASONE
     Indication: Antibiotic therapy
     Dosage: UNK
     Route: 065
  2. ACYCLOVIR [Suspect]
     Active Substance: ACYCLOVIR
     Indication: Antibiotic therapy
     Dosage: UNK
     Route: 065

REACTIONS (1)
  - Condition aggravated [Unknown]
